FAERS Safety Report 5021870-2 (Version None)
Quarter: 2006Q2

REPORT INFORMATION
  Report Type: 
  Country: None (occurrence: None)
  Receive Date: 20060609
  Receipt Date: 20060530
  Transmission Date: 20061013
  Serious: Yes (Death, Life-Threatening, Hospitalization)
  Sender: FDA-Public Use
  Company Number: US-JNJFOC-20060403117

PATIENT
  Sex: Female
  Weight: 52.8 kg

DRUGS (28)
  1. DOXIL [Suspect]
     Indication: T-CELL LYMPHOMA
     Route: 042
  2. CYCLOPHOSPHAMIDE [Suspect]
     Route: 042
  3. CYCLOPHOSPHAMIDE [Suspect]
     Indication: T-CELL LYMPHOMA
     Route: 042
  4. MESNA [Suspect]
     Indication: T-CELL LYMPHOMA
     Route: 042
  5. VINCRISTINE [Suspect]
     Indication: T-CELL LYMPHOMA
     Route: 042
  6. DECADRON [Suspect]
     Indication: T-CELL LYMPHOMA
     Route: 048
  7. METHOTREXATE [Suspect]
     Route: 042
  8. METHOTREXATE [Suspect]
     Indication: T-CELL LYMPHOMA
     Route: 042
  9. ARA-C [Suspect]
     Indication: T-CELL LYMPHOMA
     Route: 042
  10. LEUKOVORIN [Suspect]
     Route: 048
  11. LEUKOVORIN [Suspect]
     Indication: T-CELL LYMPHOMA
     Route: 048
  12. FLUCONAZOLE [Concomitant]
     Route: 048
  13. CIPROFLOXACIN [Concomitant]
     Route: 048
  14. NEUPOGEN [Concomitant]
     Indication: T-CELL LYMPHOMA
     Route: 058
  15. PROTONIX [Concomitant]
  16. ACYCLOVIR [Concomitant]
  17. LOTREL [Concomitant]
  18. LOTREL [Concomitant]
  19. AMBIEN [Concomitant]
  20. COMPAZINE [Concomitant]
  21. DARVON [Concomitant]
  22. VALTREX [Concomitant]
  23. ZOFRAN [Concomitant]
     Route: 042
  24. SODIUM ACETATE [Concomitant]
     Route: 042
  25. SODIUM BICARBONATE [Concomitant]
     Route: 048
  26. PREDNISOLONE ACETATE [Concomitant]
     Route: 047
  27. AMBIEN [Concomitant]
     Indication: INSOMNIA
     Route: 048
  28. COMPAZINE [Concomitant]
     Indication: NAUSEA
     Route: 048

REACTIONS (5)
  - ACUTE RESPIRATORY FAILURE [None]
  - ATRIAL FIBRILLATION [None]
  - CYTOMEGALOVIRUS ANTIGEN POSITIVE [None]
  - PNEUMONIA [None]
  - PULMONARY OEDEMA [None]
